FAERS Safety Report 20075548 (Version 2)
Quarter: 2021Q4

REPORT INFORMATION
  Report Type: Spontaneous
  Country: US (occurrence: US)
  Receive Date: 20211116
  Receipt Date: 20211223
  Transmission Date: 20220304
  Serious: Yes (Other)
  Sender: FDA-Public Use
  Company Number: US-TAKEDA-2021TUS071351

PATIENT
  Sex: Male
  Weight: 119 kg

DRUGS (3)
  1. VONVENDI [Suspect]
     Active Substance: VON WILLEBRAND FACTOR (RECOMBINANT)
     Indication: Von Willebrand^s disease
     Dosage: 8500 INTERNATIONAL UNIT, PRN
     Route: 042
     Dates: start: 202010
  2. VONVENDI [Suspect]
     Active Substance: VON WILLEBRAND FACTOR (RECOMBINANT)
     Dosage: 8000 INTERNATIONAL UNIT, 1/WEEK
     Route: 042
     Dates: start: 20201106
  3. AMICAR [Concomitant]
     Active Substance: AMINOCAPROIC ACID
     Indication: Von Willebrand^s disease
     Dosage: 6 GRAM, Q6HR
     Route: 048
     Dates: start: 20181106

REACTIONS (6)
  - Epistaxis [Unknown]
  - Mouth haemorrhage [Unknown]
  - Contusion [Unknown]
  - Ear haemorrhage [Recovered/Resolved]
  - Sensitivity to weather change [Unknown]
  - Stress [Unknown]
